FAERS Safety Report 7493770-X (Version None)
Quarter: 2011Q2

REPORT INFORMATION
  Report Type: 
  Country: None (occurrence: None)
  Receive Date: 20110520
  Receipt Date: 20110218
  Transmission Date: 20111010
  Serious: No
  Sender: FDA-Public Use
  Company Number: US-ASTRAZENECA-2011SE09751

PATIENT
  Age: 48 Year
  Sex: Female

DRUGS (1)
  1. VIMOVO [Suspect]
     Indication: OSTEOARTHRITIS
     Dosage: 500 MG/20 MG, TWO TIMES A DAY
     Route: 048

REACTIONS (1)
  - BLOOD URINE PRESENT [None]
